FAERS Safety Report 5309410-1 (Version None)
Quarter: 2007Q2

REPORT INFORMATION
  Report Type: 
  Country: None (occurrence: None)
  Receive Date: 20070424
  Receipt Date: 20070424
  Transmission Date: 20071010
  Serious: Yes (Other)
  Sender: FDA-Public Use
  Company Number: None

PATIENT
  Age: 47 Year
  Sex: Male
  Weight: 90.7194 kg

DRUGS (2)
  1. TRYPTOPHAN (NATURAL) [Suspect]
     Indication: GENERALISED ANXIETY DISORDER
     Dosage: UNKNOWN INGESTION PO
     Route: 048
     Dates: start: 20070422, end: 20070422
  2. CLONAZEPAM [Suspect]

REACTIONS (5)
  - ADVERSE DRUG REACTION [None]
  - DRUG INTERACTION [None]
  - FOOD INTERACTION [None]
  - MUSCLE RIGIDITY [None]
  - NERVOUSNESS [None]
